FAERS Safety Report 7067416-9 (Version None)
Quarter: 2010Q4

REPORT INFORMATION
  Report Type: 
  Country: None (occurrence: None)
  Receive Date: 20101026
  Receipt Date: 20101026
  Transmission Date: 20110411
  Serious: Yes (Other)
  Sender: FDA-Public Use
  Company Number: None

PATIENT
  Age: 48 Year
  Sex: Female
  Weight: 67.586 kg

DRUGS (1)
  1. SUBOXONE [Suspect]
     Dosage: 2MG PO QD BUCCAL
     Route: 002

REACTIONS (2)
  - CONSTIPATION [None]
  - DRUG DEPENDENCE [None]
